FAERS Safety Report 9360198 (Version 6)
Quarter: 2014Q1

REPORT INFORMATION
  Report Type: Spontaneous
  Country: US (occurrence: US)
  Receive Date: 20130621
  Receipt Date: 20140217
  Transmission Date: 20141002
  Serious: Yes (Hospitalization)
  Sender: FDA-Public Use
  Company Number: US-BIOGENIDEC-2013BI052865

PATIENT
  Age: 49 Year
  Sex: Male

DRUGS (4)
  1. TYSABRI [Suspect]
     Indication: MULTIPLE SCLEROSIS
     Route: 042
     Dates: start: 20121018, end: 20130904
  2. MS CONTIN [Concomitant]
     Indication: PAIN
     Route: 048
  3. PERCOCET [Concomitant]
     Indication: PAIN
     Route: 048
  4. ZOLOFT [Concomitant]
     Dates: start: 2013

REACTIONS (14)
  - Muscular weakness [Unknown]
  - Paraesthesia [Unknown]
  - Pain in extremity [Unknown]
  - Testicular cyst [Unknown]
  - Urge incontinence [Unknown]
  - Renal cyst [Unknown]
  - Prostatic atrophy [Unknown]
  - Muscle spasms [Unknown]
  - Peripheral coldness [Unknown]
  - Convulsion [Recovered/Resolved]
  - Vomiting [Recovered/Resolved]
  - Erectile dysfunction [Unknown]
  - Burning sensation [Recovered/Resolved]
  - Urinary retention [Unknown]
